FAERS Safety Report 5648600-5 (Version None)
Quarter: 2008Q1

REPORT INFORMATION
  Report Type: 
  Country: None (occurrence: None)
  Receive Date: 20080304
  Receipt Date: 20080228
  Transmission Date: 20080703
  Serious: Yes (Other)
  Sender: FDA-Public Use
  Company Number: NL-TEVA-161947USA

PATIENT
  Sex: Male

DRUGS (1)
  1. PIMOZIDE TABLETS [Suspect]
     Dosage: TOOK FOR ABOUT 6 TO 7 YEARS

REACTIONS (1)
  - WEIGHT INCREASED [None]
